FAERS Safety Report 13035855 (Version 6)
Quarter: 2017Q2

REPORT INFORMATION
  Report Type: Spontaneous
  Country: US (occurrence: US)
  Receive Date: 20161216
  Receipt Date: 20170608
  Transmission Date: 20170830
  Serious: Yes (Life-Threatening, Hospitalization, Other)
  Sender: FDA-Public Use
  Company Number: US-PFIZER INC-2016582481

PATIENT
  Age: 59 Year
  Sex: Female
  Weight: 81 kg

DRUGS (5)
  1. VFEND [Suspect]
     Active Substance: VORICONAZOLE
     Indication: PLEURAL INFECTION
  2. VFEND [Suspect]
     Active Substance: VORICONAZOLE
     Indication: HISTOPLASMOSIS
  3. VFEND [Suspect]
     Active Substance: VORICONAZOLE
     Indication: EMPHYSEMA
     Dosage: 250 MG, 2X/DAY
     Route: 048
     Dates: start: 20161209
  4. VFEND [Suspect]
     Active Substance: VORICONAZOLE
     Indication: ASPERGILLUS INFECTION
  5. VFEND [Suspect]
     Active Substance: VORICONAZOLE
     Indication: INFECTION
     Dosage: 200 MG, 2X/DAY
     Route: 048
     Dates: start: 201611, end: 201611

REACTIONS (4)
  - Infection [Unknown]
  - Empyema [Recovered/Resolved]
  - Device related infection [Unknown]
  - Influenza [Unknown]

NARRATIVE: CASE EVENT DATE: 201612
